FAERS Safety Report 10852943 (Version 1)
Quarter: 2015Q1

REPORT INFORMATION
  Report Type: Report from Study
  Country: US (occurrence: US)
  Receive Date: 20150223
  Receipt Date: 20150223
  Transmission Date: 20150721
  Serious: Yes (Other)
  Sender: FDA-Public Use
  Company Number: US-ROCHE-1536170

PATIENT
  Age: 83 Year
  Sex: Male

DRUGS (1)
  1. OBINUTUZUMAB [Suspect]
     Active Substance: OBINUTUZUMAB
     Indication: CHRONIC LYMPHOCYTIC LEUKAEMIA
     Dosage: DAY ONE DOSE
     Route: 065

REACTIONS (4)
  - Presyncope [Unknown]
  - Hypotension [Unknown]
  - Flushing [Unknown]
  - Cyanosis [Unknown]
